FAERS Safety Report 12135198 (Version 1)
Quarter: 2016Q1

REPORT INFORMATION
  Report Type: Spontaneous
  Country: GB (occurrence: GB)
  Receive Date: 20160301
  Receipt Date: 20160301
  Transmission Date: 20160526
  Serious: Yes (Other)
  Sender: FDA-Public Use
  Company Number: GB-AMGEN-GBRSP2016006565

PATIENT
  Sex: Male

DRUGS (3)
  1. XGEVA [Suspect]
     Active Substance: DENOSUMAB
     Indication: PRODUCT USED FOR UNKNOWN INDICATION
     Dosage: 120 MG, QMO
     Route: 058
  2. INDAPAMIDE. [Concomitant]
     Active Substance: INDAPAMIDE
     Dosage: 1.5 MG, QD
     Dates: start: 20160101
  3. VOTRIENT [Concomitant]
     Active Substance: PAZOPANIB HYDROCHLORIDE
     Dosage: 400 MG, UNK
     Route: 048

REACTIONS (8)
  - Infection [Unknown]
  - Spinal disorder [Unknown]
  - Blood disorder [Unknown]
  - Groin pain [Unknown]
  - Blood pressure increased [Not Recovered/Not Resolved]
  - Diarrhoea [Unknown]
  - Paraesthesia [Unknown]
  - Lethargy [Unknown]
